FAERS Safety Report 12960390 (Version 1)
Quarter: 2016Q4

REPORT INFORMATION
  Report Type: Spontaneous
  Country: AU (occurrence: AU)
  Receive Date: 20161121
  Receipt Date: 20161121
  Transmission Date: 20170207
  Serious: Yes (Other)
  Sender: FDA-Public Use
  Company Number: AU-BAYER-2016-221078

PATIENT
  Sex: Female

DRUGS (1)
  1. MIRENA [Suspect]
     Active Substance: LEVONORGESTREL
     Indication: CONTRACEPTION

REACTIONS (5)
  - Haemorrhage in pregnancy [None]
  - Drug ineffective [None]
  - Ectopic pregnancy with contraceptive device [None]
  - Human chorionic gonadotropin decreased [None]
  - Breast pain [None]
